FAERS Safety Report 21568616 (Version 1)
Quarter: 2022Q4

REPORT INFORMATION
  Report Type: Report from Study
  Country: US (occurrence: US)
  Receive Date: 20221108
  Receipt Date: 20221108
  Transmission Date: 20230113
  Serious: Yes (Hospitalization)
  Sender: FDA-Public Use
  Company Number: US-SEATTLE GENETICS-2022SGN10423

PATIENT
  Age: 54 Year
  Sex: Female
  Weight: 78.6 kg

DRUGS (8)
  1. BRENTUXIMAB VEDOTIN [Suspect]
     Active Substance: BRENTUXIMAB VEDOTIN
     Indication: Mesothelioma
     Dosage: 195 MG
     Route: 065
     Dates: start: 20220927, end: 20221018
  2. ACETAMINOPHEN [Concomitant]
     Active Substance: ACETAMINOPHEN
     Indication: Headache
     Dosage: 500 MG
     Route: 065
     Dates: start: 2021
  3. ACETAMINOPHEN [Concomitant]
     Active Substance: ACETAMINOPHEN
     Indication: Chest pain
  4. CETIRIZINE [Concomitant]
     Active Substance: CETIRIZINE HYDROCHLORIDE
     Indication: Seasonal allergy
     Dosage: 10 MG
     Route: 065
     Dates: start: 2002
  5. FOLIC ACID [Concomitant]
     Active Substance: FOLIC ACID
     Indication: Prophylaxis
     Dosage: 400 MCG
     Route: 065
     Dates: start: 2021
  6. LEVOTHYROXINE [Concomitant]
     Active Substance: LEVOTHYROXINE
     Indication: Hypothyroidism
     Dosage: 88 MCG
     Route: 065
     Dates: start: 2015
  7. TRAMADOL [Concomitant]
     Active Substance: TRAMADOL
     Indication: Chest pain
     Dosage: 50 MG
     Route: 065
     Dates: start: 2021
  8. LOPERAMIDE [Concomitant]
     Active Substance: LOPERAMIDE
     Indication: Diarrhoea
     Dosage: 2 MG
     Route: 065
     Dates: start: 20221004

REACTIONS (2)
  - Urosepsis [Not Recovered/Not Resolved]
  - Neutropenia [Not Recovered/Not Resolved]

NARRATIVE: CASE EVENT DATE: 20221029
